FAERS Safety Report 10061690 (Version 1)
Quarter: 2014Q2

REPORT INFORMATION
  Report Type: Spontaneous
  Country: US (occurrence: US)
  Receive Date: 20140407
  Receipt Date: 20140407
  Transmission Date: 20141212
  Serious: No
  Sender: FDA-Public Use
  Company Number: US-TARO-2013P1019579

PATIENT
  Age: 72 Year
  Sex: Female
  Weight: 83.92 kg

DRUGS (8)
  1. FLUOROURACIL TOPICAL CREAM USP 5% [Suspect]
     Route: 061
     Dates: start: 20130820, end: 20130915
  2. FISH OIL TABLETS [Concomitant]
  3. VITAMIN D3 [Concomitant]
  4. ASPIRIN [Concomitant]
  5. PREMPRO [Concomitant]
  6. TRICOR [Concomitant]
  7. HYDROCHLOROTHIAZIDE [Concomitant]
  8. SYSTANE EYEDROPS [Concomitant]

REACTIONS (8)
  - Application site erythema [Not Recovered/Not Resolved]
  - Application site vesicles [Not Recovered/Not Resolved]
  - Application site exfoliation [Not Recovered/Not Resolved]
  - Scab [Not Recovered/Not Resolved]
  - Skin hypertrophy [Not Recovered/Not Resolved]
  - Pruritus [Not Recovered/Not Resolved]
  - Thermal burn [Not Recovered/Not Resolved]
  - Dry skin [Not Recovered/Not Resolved]
